FAERS Safety Report 8184869-3 (Version None)
Quarter: 2012Q1

REPORT INFORMATION
  Report Type: 
  Country: None (occurrence: None)
  Receive Date: 20120305
  Receipt Date: 20120223
  Transmission Date: 20120608
  Serious: Yes (Hospitalization)
  Sender: FDA-Public Use
  Company Number: US-UCBSA-032629

PATIENT
  Age: 58 Year
  Sex: Female
  Weight: 60.78 kg

DRUGS (22)
  1. KEPPRA XR [Concomitant]
     Dates: start: 20110218, end: 20110302
  2. KEPPRA XR [Concomitant]
     Dates: start: 20110510, end: 20110511
  3. PAXIL [Concomitant]
     Indication: DEPRESSION
     Dates: start: 20101001, end: 20110513
  4. PANTOPRAZOLE SODIUM [Concomitant]
     Indication: GASTRIC HAEMORRHAGE
     Dates: start: 20110507, end: 20110512
  5. PROPOFOL [Concomitant]
     Indication: SEDATIVE THERAPY
     Dosage: 650 MG PRN
     Dates: start: 20110507, end: 20110508
  6. DUONEB [Concomitant]
     Dosage: PRN EVERY 4 HOURS
     Dates: start: 20110509, end: 20110511
  7. KEPPRA XR [Concomitant]
     Dates: start: 20110501, end: 20110523
  8. ACETAMINOPHEN [Concomitant]
     Indication: PAIN PROPHYLAXIS
     Dosage: 650 MG PRN
     Dates: start: 20110507, end: 20110511
  9. METOPROLOL SUCCINATE [Concomitant]
     Indication: HYPERTENSION
     Dates: start: 20110511
  10. NAPROXEN [Concomitant]
     Indication: NEUROPATHY PERIPHERAL
     Dates: start: 20100701, end: 20110506
  11. ALPRAZOLAM [Concomitant]
     Indication: ANXIETY
     Dosage: PRN
     Dates: start: 20110101, end: 20110512
  12. KEPPRA XR [Concomitant]
     Dates: start: 20110317, end: 20110101
  13. LEVOFLAXIN/DEXTROSE [Concomitant]
     Dates: start: 20110507, end: 20110512
  14. KEPPRA XR [Concomitant]
     Dates: start: 20110303, end: 20110316
  15. KEPPRA XR [Concomitant]
     Indication: EPILEPSY
     Dates: start: 20100413, end: 20110217
  16. TOPAMAX [Concomitant]
     Dates: start: 20100909, end: 20110217
  17. LEVOFLAXIN/DEXTROSE [Concomitant]
     Indication: INFECTION PROPHYLAXIS
     Dates: start: 20110507, end: 20110512
  18. LACOSAMIDE [Suspect]
     Indication: EPILEPSY
     Route: 048
     Dates: start: 20110127, end: 20110506
  19. TRAZODONE HCL [Concomitant]
     Indication: INSOMNIA
     Dates: start: 20100601, end: 20110506
  20. SODIUM CHLORIDE [Concomitant]
     Indication: DEHYDRATION
     Dosage: 1000 ML CONTINUOUS
     Dates: start: 20110507, end: 20110512
  21. VERSED [Concomitant]
     Indication: CONVULSION
     Dosage: UNKNOWN DOSE ONCE EVERY ONE DAY
     Dates: start: 20110506, end: 20110506
  22. CLONIDINE HCL [Concomitant]
     Indication: CONVULSION
     Dates: start: 20110511, end: 20110511

REACTIONS (2)
  - SEIZURE CLUSTER [None]
  - INAPPROPRIATE ANTIDIURETIC HORMONE SECRETION [None]
